FAERS Safety Report 7303556 (Version 6)
Quarter: 2012Q4

REPORT INFORMATION
  Report Type: Report from Study
  Country: FR (occurrence: FR)
  Receive Date: 20100303
  Receipt Date: 20120914
  Transmission Date: 20130627
  Serious: Yes (Death, Hospitalization)
  Sender: FDA-Public Use
  Company Number: FR-ROCHE-684536

PATIENT
  Age: 61 Year
  Sex: Male
  Weight: 84 kg

DRUGS (4)
  1. AVASTIN [Suspect]
     Indication: NON-SMALL CELL LUNG CANCER
     Dosage: PERMANENTLY DISCONTINUED.
     Route: 042
     Dates: start: 20091208, end: 20100119
  2. TARCEVA [Suspect]
     Indication: NON-SMALL CELL LUNG CANCER
     Dosage: PERMANENTLY DISCONTINUED.
     Route: 048
     Dates: start: 20091208, end: 20100211
  3. APROVEL [Concomitant]
     Route: 065
     Dates: start: 20100120, end: 20100203
  4. APROVEL [Concomitant]
     Route: 065

REACTIONS (2)
  - Hypertensive encephalopathy [Fatal]
  - Hypertension [Recovered/Resolved with Sequelae]
